FAERS Safety Report 7701809-9 (Version None)
Quarter: 2011Q3

REPORT INFORMATION
  Report Type: 
  Country: None (occurrence: None)
  Receive Date: 20110822
  Receipt Date: 20110818
  Transmission Date: 20111222
  Serious: Yes (Life-Threatening)
  Sender: FDA-Public Use
  Company Number: FR-ASTRAZENECA-2011SE49715

PATIENT
  Age: 58 Year
  Sex: Male

DRUGS (2)
  1. DIPRIVAN [Suspect]
     Indication: COLONOSCOPY
     Route: 040
     Dates: start: 20110721, end: 20110721
  2. CELOCURINE [Suspect]
     Indication: COLONOSCOPY
     Route: 042
     Dates: start: 20110721, end: 20110721

REACTIONS (2)
  - CARDIAC ARREST [None]
  - ANAPHYLACTIC SHOCK [None]
